FAERS Safety Report 4316492-2 (Version None)
Quarter: 2004Q1

REPORT INFORMATION
  Report Type: 
  Country: None (occurrence: None)
  Receive Date: 20040311
  Receipt Date: 20040223
  Transmission Date: 20041129
  Serious: Yes (Other)
  Sender: FDA-Public Use
  Company Number: SP00140(0)

PATIENT
  Sex: Female

DRUGS (1)
  1. COLAZAL [Suspect]
     Indication: COLITIS ULCERATIVE
     Dosage: ^FULL DOSE^
     Dates: start: 20030909, end: 20040115

REACTIONS (1)
  - NEUTROPENIA [None]
